FAERS Safety Report 23783856 (Version 2)
Quarter: 2024Q3

REPORT INFORMATION
  Report Type: Spontaneous
  Country: US (occurrence: US)
  Receive Date: 20240425
  Receipt Date: 20240905
  Transmission Date: 20241016
  Serious: No
  Sender: PFIZER
  Company Number: US-PFIZER INC-202400093083

PATIENT
  Age: 43 Year
  Sex: Female

DRUGS (1)
  1. XELJANZ XR [Suspect]
     Active Substance: TOFACITINIB CITRATE
     Dosage: 11 MG
     Dates: start: 202401

REACTIONS (3)
  - Swollen tongue [Unknown]
  - Oropharyngeal pain [Unknown]
  - Blister [Unknown]

NARRATIVE: CASE EVENT DATE: 20240101
